FAERS Safety Report 25094012 (Version 1)
Quarter: 2025Q1

REPORT INFORMATION
  Report Type: Spontaneous
  Country: US (occurrence: US)
  Receive Date: 20250319
  Receipt Date: 20250319
  Transmission Date: 20250409
  Serious: No
  Sender: SANOFI AVENTIS
  Company Number: US-SA-2025SA079078

PATIENT
  Age: 36 Year
  Sex: Female

DRUGS (1)
  1. DUPIXENT [Suspect]
     Active Substance: DUPILUMAB
     Indication: Neurodermatitis
     Dosage: 300MG
     Route: 058
     Dates: start: 202410

REACTIONS (5)
  - Neurodermatitis [Unknown]
  - Skin infection [Unknown]
  - Skin hyperpigmentation [Unknown]
  - Formication [Unknown]
  - Pruritus [Unknown]
